FAERS Safety Report 5148683-5 (Version None)
Quarter: 2006Q4

REPORT INFORMATION
  Report Type: 
  Country: None (occurrence: None)
  Receive Date: 20060918
  Receipt Date: 20060414
  Transmission Date: 20070319
  Serious: Yes (Other)
  Sender: FDA-Public Use
  Company Number: US-JNJFOC-20060403529

PATIENT
  Age: 28 Year
  Sex: Female
  Weight: 56.6996 kg

DRUGS (5)
  1. TOPAMAX [Suspect]
     Indication: BIPOLAR DISORDER
     Dosage: SEE IMAGE
     Route: 048
     Dates: start: 20050101, end: 20060401
  2. TOPAMAX [Suspect]
     Indication: BIPOLAR DISORDER
     Dosage: SEE IMAGE
     Route: 048
     Dates: start: 20060401, end: 20060411
  3. TOPAMAX [Suspect]
     Indication: BIPOLAR DISORDER
     Dosage: SEE IMAGE
     Route: 048
     Dates: start: 20060411
  4. LITHIUM (LITHIUM) [Concomitant]
  5. WELBUTRIN (BUPROPION HYDROCHLORIDE) [Concomitant]

REACTIONS (5)
  - DYSPNOEA [None]
  - MEMORY IMPAIRMENT [None]
  - NIGHT SWEATS [None]
  - VERTIGO [None]
  - WEIGHT DECREASED [None]
